FAERS Safety Report 24145306 (Version 1)
Quarter: 2024Q3

REPORT INFORMATION
  Report Type: Spontaneous
  Country: US (occurrence: US)
  Receive Date: 20240729
  Receipt Date: 20240729
  Transmission Date: 20241017
  Serious: No
  Sender: ROCHE
  Company Number: US-ROCHE-10000035264

PATIENT
  Age: 38 Year
  Sex: Female

DRUGS (2)
  1. RITUXIMAB [Suspect]
     Active Substance: RITUXIMAB
     Indication: Pemphigus
     Route: 065
  2. FLUOCINONIDE [Concomitant]
     Active Substance: FLUOCINONIDE

REACTIONS (1)
  - Serum sickness [Recovered/Resolved]
